FAERS Safety Report 18185996 (Version 1)
Quarter: 2020Q3

REPORT INFORMATION
  Report Type: Spontaneous
  Country: DE (occurrence: DE)
  Receive Date: 20200824
  Receipt Date: 20200824
  Transmission Date: 20201103
  Serious: Yes (Hospitalization)
  Sender: FDA-Public Use
  Company Number: DE-TEVA-2020-DE-1817133

PATIENT
  Age: 80 Year
  Sex: Female

DRUGS (9)
  1. GABAPENTIN. [Concomitant]
     Active Substance: GABAPENTIN
     Dosage: 100 MILLIGRAM DAILY; 0?0?1?0
     Route: 048
  2. NALOXON/TILIDIN [Concomitant]
     Dosage: 4 | 50 MG, IF NECESSARY, SUSTAINED?RELEASE TABLETS
     Route: 048
  3. ACICLOVIR [Concomitant]
     Active Substance: ACYCLOVIR
     Dosage: 400 MILLIGRAM DAILY; 1?0?1?0
     Route: 048
  4. PANTOPRAZOL [Concomitant]
     Active Substance: PANTOPRAZOLE SODIUM
     Dosage: 40 MILLIGRAM DAILY; 1?0?0?0
     Route: 048
  5. METOPROLOL. [Concomitant]
     Active Substance: METOPROLOL
     Dosage: 47.5 MILLIGRAM DAILY; 1?0?1?0
     Route: 048
  6. TINZAPARIN [Concomitant]
     Active Substance: TINZAPARIN
     Dosage: 20000 IU (INTERNATIONAL UNIT) DAILY; 0?0?1?0
     Route: 058
  7. COTRIM?CT 800MG/160MG [Concomitant]
     Active Substance: SULFAMETHOXAZOLE\TRIMETHOPRIM
     Dosage: 1 DOSAGE FORMS DAILY; 800|160 MG, 1?0?0?0
     Route: 048
  8. DIGITOXIN [Concomitant]
     Active Substance: DIGITOXIN
     Dosage: .07 MILLIGRAM DAILY; 1?0?0?0
     Route: 048
  9. DEXAMETHASONE. [Suspect]
     Active Substance: DEXAMETHASONE
     Dosage: 8 MILLIGRAM DAILY; 1?1?0?0
     Route: 048

REACTIONS (2)
  - Musculoskeletal pain [Unknown]
  - Fracture [Unknown]
